FAERS Safety Report 22594911 (Version 1)
Quarter: 2023Q2

REPORT INFORMATION
  Report Type: Spontaneous
  Country: US (occurrence: US)
  Receive Date: 20230613
  Receipt Date: 20230613
  Transmission Date: 20230721
  Serious: No
  Sender: FDA-Public Use
  Company Number: US-BIOVITRUM-2023-US-011789

PATIENT
  Age: 47 Year
  Sex: Male

DRUGS (1)
  1. KINERET [Suspect]
     Active Substance: ANAKINRA
     Indication: Heparin-induced thrombocytopenia
     Dosage: 100MG DAILY
     Route: 058
     Dates: start: 20200513

REACTIONS (2)
  - Illness [Unknown]
  - Intentional product misuse [Unknown]
